FAERS Safety Report 19835299 (Version 3)
Quarter: 2022Q2

REPORT INFORMATION
  Report Type: Report from Study
  Country: US (occurrence: US)
  Receive Date: 20210914
  Receipt Date: 20220602
  Transmission Date: 20220721
  Serious: Yes (Other)
  Sender: FDA-Public Use
  Company Number: NVSC2021US204401

PATIENT
  Age: 16 Year
  Sex: Male

DRUGS (5)
  1. AFINITOR [Suspect]
     Active Substance: EVEROLIMUS
     Indication: Astrocytoma, low grade
     Dosage: 7.5 MG, QD
     Route: 048
     Dates: start: 20110516
  2. AFINITOR [Suspect]
     Active Substance: EVEROLIMUS
     Dosage: 2.5 MG (2.5 MG MWF AND 7.5 MG T,TH,SAT,SUN)
     Route: 048
     Dates: start: 20110603
  3. AFINITOR [Suspect]
     Active Substance: EVEROLIMUS
     Dosage: 7.5 MG (4 DAYS/WK)
     Route: 048
     Dates: start: 20210603
  4. AFINITOR [Suspect]
     Active Substance: EVEROLIMUS
     Dosage: 10 MG (3 DAYS/WK)
     Route: 048
     Dates: start: 20210603
  5. AFINITOR [Suspect]
     Active Substance: EVEROLIMUS
     Dosage: UNK (7.5MG 4 DAYS/WK AND 5MG 3 DAYS/WK)
     Route: 048

REACTIONS (4)
  - Malignant neoplasm progression [Unknown]
  - Astrocytoma, low grade [Unknown]
  - Drug level increased [Recovering/Resolving]
  - Laboratory test abnormal [Unknown]

NARRATIVE: CASE EVENT DATE: 20210601
